FAERS Safety Report 6026799-9 (Version None)
Quarter: 2009Q1

REPORT INFORMATION
  Report Type: 
  Country: None (occurrence: None)
  Receive Date: 20090105
  Receipt Date: 20081224
  Transmission Date: 20090719
  Serious: Yes (Other)
  Sender: FDA-Public Use
  Company Number: JP-BAYER-200813199BYL

PATIENT
  Age: 61 Year
  Sex: Male
  Weight: 50 kg

DRUGS (1)
  1. GLUCOBAY [Suspect]
     Indication: POST GASTRIC SURGERY SYNDROME
     Route: 048

REACTIONS (1)
  - HYPOGLYCAEMIA [None]
